FAERS Safety Report 7814903-9 (Version None)
Quarter: 2011Q4

REPORT INFORMATION
  Report Type: 
  Country: None (occurrence: None)
  Receive Date: 20111014
  Receipt Date: 20110930
  Transmission Date: 20120403
  Serious: Yes (Hospitalization)
  Sender: FDA-Public Use
  Company Number: US-BAYER-2011-094888

PATIENT
  Age: 77 Year
  Sex: Male
  Weight: 81.179 kg

DRUGS (17)
  1. NEXIUM [Concomitant]
     Dosage: UNK
     Dates: start: 20110726, end: 20110810
  2. HYDRALAZINE HCL [Concomitant]
     Dosage: UNK
     Dates: start: 20010101
  3. CENTRUM SILVER [Concomitant]
     Dosage: UNK
     Dates: start: 20060101
  4. CALCIUM CARBONATE [Concomitant]
     Dosage: UNK
     Dates: start: 20060101
  5. NAPROXEN (ALEVE) [Concomitant]
     Dosage: UNK
     Dates: start: 20080101
  6. NAPROXEN [Suspect]
     Indication: RHEUMATOID ARTHRITIS
  7. LOSARTAN POTASSIUM [Concomitant]
     Dosage: UNK
     Dates: start: 20010101
  8. OSTEO BI-FLEX [Concomitant]
     Dosage: UNK
     Dates: start: 20060101
  9. ACETYLSALICYLIC ACID SRT [Suspect]
     Indication: CARDIOVASCULAR EVENT PROPHYLAXIS
     Dosage: 81 MG, QD
     Route: 048
     Dates: start: 19950101
  10. NAPROXEN [Suspect]
     Indication: OSTEOARTHRITIS
     Dosage: UNK
     Dates: start: 20110726, end: 20110810
  11. NAPROXEN [Suspect]
     Indication: OSTEOARTHRITIS
     Dosage: UNK
     Dates: start: 20110726, end: 20110810
  12. CARVEDILOL [Concomitant]
     Dosage: UNK
     Dates: start: 20080101
  13. VITAMIN D [Concomitant]
     Dosage: UNK
     Dates: start: 20060101
  14. TAMSULOSIN HCL [Concomitant]
     Dosage: UNK
     Dates: start: 20080101
  15. LEVOBUNOLOL [Concomitant]
     Dosage: UNK
     Dates: start: 19910101
  16. CELECOXIB [Suspect]
     Indication: RHEUMATOID ARTHRITIS
  17. SIMVASTATIN [Concomitant]
     Dosage: UNK
     Dates: start: 20080101

REACTIONS (2)
  - CHEST PAIN [None]
  - GASTROOESOPHAGEAL REFLUX DISEASE [None]
